APPROVED DRUG PRODUCT: AMINOSYN II 5% IN DEXTROSE 25% IN PLASTIC CONTAINER
Active Ingredient: AMINO ACIDS; DEXTROSE
Strength: 5%;25GM/100ML
Dosage Form/Route: INJECTABLE;INJECTION
Application: N019565 | Product #001
Applicant: ABBOTT LABORATORIES PHARMACEUTICAL PRODUCTS DIV
Approved: Dec 17, 1986 | RLD: No | RS: No | Type: DISCN